FAERS Safety Report 20662848 (Version 2)
Quarter: 2022Q2

REPORT INFORMATION
  Report Type: Spontaneous
  Country: FR (occurrence: FR)
  Receive Date: 20220401
  Receipt Date: 20220610
  Transmission Date: 20220721
  Serious: Yes (Other)
  Sender: FDA-Public Use
  Company Number: FR-NOVARTISPH-NVSC2022FR072882

PATIENT
  Sex: Female
  Weight: 2.18 kg

DRUGS (2)
  1. CANAKINUMAB [Suspect]
     Active Substance: CANAKINUMAB
     Indication: Foetal exposure during pregnancy
     Dosage: MATERNAL DOSE: 150 MG, Q4W
     Route: 064
  2. COLCHICINE [Suspect]
     Active Substance: COLCHICINE
     Indication: Foetal exposure during pregnancy
     Dosage: MATERNAL DOSE: 2 MG QD
     Route: 064

REACTIONS (3)
  - Premature baby [Unknown]
  - Low birth weight baby [Unknown]
  - Foetal exposure during pregnancy [Unknown]
